FAERS Safety Report 8878770 (Version 1)
Quarter: 2012Q4

REPORT INFORMATION
  Report Type: 
  Country: GB (occurrence: GB)
  Receive Date: 20121030
  Receipt Date: 20121030
  Transmission Date: 20130627
  Serious: Yes (Other)
  Sender: FDA-Public Use
  Company Number: GB-PERRIGO-12GB005904

PATIENT
  Age: 4 Year
  Sex: Male
  Weight: 26.04 kg

DRUGS (3)
  1. CETIRIZINE HYDROCHLORIDE 16208/0066 10 MG [Suspect]
     Indication: SEASONAL ALLERGY
     Dosage: UNK
     Route: 048
     Dates: start: 201206
  2. MELATONIN [Suspect]
     Indication: POOR QUALITY SLEEP
     Dosage: 6 mg, UNK
     Route: 048
     Dates: start: 20120531
  3. MELATONIN [Suspect]
     Dosage: 2 mg, UNK
     Route: 048
     Dates: start: 201202

REACTIONS (3)
  - Loss of consciousness [Recovered/Resolved]
  - Somnolence [Recovered/Resolved]
  - Wrong drug administered [Unknown]
